FAERS Safety Report 25803566 (Version 2)
Quarter: 2025Q3

REPORT INFORMATION
  Report Type: Spontaneous
  Country: US (occurrence: US)
  Receive Date: 20250915
  Receipt Date: 20250924
  Transmission Date: 20251020
  Serious: No
  Sender: GRIFOLS
  Company Number: US-IGSA-BIG0037798

PATIENT
  Age: 33 Year
  Sex: Female

DRUGS (13)
  1. GAMUNEX-C [Suspect]
     Active Substance: HUMAN IMMUNOGLOBULIN G
     Indication: Chronic inflammatory demyelinating polyradiculoneuropathy
     Dosage: 30 GRAM, Q.4WK.
     Route: 042
     Dates: start: 20250903, end: 20250903
  2. GAMUNEX-C [Suspect]
     Active Substance: HUMAN IMMUNOGLOBULIN G
     Dosage: 70 GRAM, Q.4WK.
     Route: 042
  3. SODIUM CHLORIDE [Concomitant]
     Active Substance: SODIUM CHLORIDE
     Indication: Premedication
     Route: 042
     Dates: start: 20250903, end: 20250903
  4. ASPIRIN [Concomitant]
     Active Substance: ASPIRIN
  5. BENLYSTA [Concomitant]
     Active Substance: BELIMUMAB
  6. DULOXETINE [Concomitant]
     Active Substance: DULOXETINE
  7. GABAPENTIN [Concomitant]
     Active Substance: GABAPENTIN
  8. HUMALOG [Concomitant]
     Active Substance: INSULIN LISPRO
  9. KYLEENA [Concomitant]
     Active Substance: LEVONORGESTREL
  10. LEVOTHYROXINE [Concomitant]
     Active Substance: LEVOTHYROXINE
  11. LISINOPRIL [Concomitant]
     Active Substance: LISINOPRIL
  12. PLAQUENIL [Concomitant]
     Active Substance: HYDROXYCHLOROQUINE SULFATE
  13. PROPRANOLOL [Concomitant]
     Active Substance: PROPRANOLOL HYDROCHLORIDE

REACTIONS (2)
  - Urticaria [Recovered/Resolved]
  - Flushing [Recovered/Resolved]

NARRATIVE: CASE EVENT DATE: 20250902
